FAERS Safety Report 12559506 (Version 1)
Quarter: 2016Q3

REPORT INFORMATION
  Report Type: Spontaneous
  Country: US (occurrence: US)
  Receive Date: 20160715
  Receipt Date: 20160715
  Transmission Date: 20161109
  Serious: No
  Sender: FDA-Public Use
  Company Number: US-PFIZER INC-2016328717

PATIENT
  Age: 55 Year
  Sex: Female
  Weight: 66.67 kg

DRUGS (3)
  1. CHANTIX [Suspect]
     Active Substance: VARENICLINE TARTRATE
     Dosage: 0.5 MG, 2X/DAY (MORNING AND NIGHT)
     Route: 048
     Dates: start: 20160616, end: 20160620
  2. CHANTIX [Suspect]
     Active Substance: VARENICLINE TARTRATE
     Indication: SMOKING CESSATION THERAPY
     Dosage: 0.5 MG, 1X/DAY (IN THE MORNING)
     Route: 048
     Dates: start: 20160613, end: 20160615
  3. CHANTIX [Suspect]
     Active Substance: VARENICLINE TARTRATE
     Dosage: THEN SHE INCREASED TO THE 1MG TABLETS AND HAS NOW BEEN TAKING THE 1MG TABLETS FOR FOUR DAYS
     Route: 048
     Dates: start: 20160621

REACTIONS (2)
  - Drug prescribing error [Unknown]
  - Drug ineffective [Unknown]

NARRATIVE: CASE EVENT DATE: 201606
